FAERS Safety Report 5202191-1 (Version None)
Quarter: 2007Q1

REPORT INFORMATION
  Report Type: 
  Country: None (occurrence: None)
  Receive Date: 20070109
  Receipt Date: 20070102
  Transmission Date: 20070707
  Serious: Yes (Hospitalization)
  Sender: FDA-Public Use
  Company Number: US-BRISTOL-MYERS SQUIBB COMPANY-13628961

PATIENT
  Age: 56 Year
  Sex: Female

DRUGS (3)
  1. ABATACEPT [Suspect]
     Indication: RHEUMATOID ARTHRITIS
     Dates: start: 20030609
  2. ALLEGRA-D 12 HOUR [Concomitant]
     Route: 048
     Dates: start: 20060413
  3. IRON [Concomitant]
     Route: 048
     Dates: start: 20050520

REACTIONS (1)
  - PULMONARY FIBROSIS [None]
